FAERS Safety Report 13866733 (Version 4)
Quarter: 2021Q4

REPORT INFORMATION
  Report Type: Report from Study
  Country: US (occurrence: US)
  Receive Date: 20170814
  Receipt Date: 20211208
  Transmission Date: 20220303
  Serious: Yes (Other)
  Sender: FDA-Public Use
  Company Number: US-ACADIA PHARMACEUTICALS INC.-ACA-2017-004157

PATIENT
  Age: 68 Year
  Sex: Male

DRUGS (42)
  1. NUPLAZID [Suspect]
     Active Substance: PIMAVANSERIN TARTRATE
     Indication: Parkinson^s disease
     Dosage: 34 MILLIGRAM, QD
     Route: 048
  2. NUPLAZID [Suspect]
     Active Substance: PIMAVANSERIN TARTRATE
     Indication: Parkinson^s disease
     Dosage: 34 MG, QD
     Route: 048
     Dates: start: 20170322, end: 20171028
  3. NUPLAZID [Suspect]
     Active Substance: PIMAVANSERIN TARTRATE
     Dosage: 34 MG, QD
     Route: 048
     Dates: start: 20180213
  4. NUPLAZID [Suspect]
     Active Substance: PIMAVANSERIN TARTRATE
     Dosage: 34 MG, QD
     Route: 048
     Dates: start: 20180625
  5. NORTHERA [Suspect]
     Active Substance: DROXIDOPA
     Indication: Product used for unknown indication
     Dosage: 300 MG, UNK
     Route: 065
  6. NORTHERA [Suspect]
     Active Substance: DROXIDOPA
     Dosage: 100 MG, UNK
     Dates: start: 20170320
  7. VITAMIN C [Concomitant]
     Active Substance: ASCORBIC ACID
     Indication: Product used for unknown indication
     Dosage: 500 MG, UNK
     Route: 048
     Dates: start: 20170320
  8. IRON [Concomitant]
     Active Substance: IRON
     Indication: Product used for unknown indication
     Dosage: 27 MG, UNK
     Dates: start: 20170320
  9. BOTOX [Concomitant]
     Active Substance: ONABOTULINUMTOXINA
     Indication: Product used for unknown indication
     Dosage: 100 UNITS, UNK
     Dates: start: 20170320
  10. ALEVE [Concomitant]
     Active Substance: NAPROXEN SODIUM
     Indication: Product used for unknown indication
     Dosage: 220 MG, UNK
     Dates: start: 20170320
  11. DOCUSATE SODIUM [Concomitant]
     Active Substance: DOCUSATE SODIUM
     Indication: Product used for unknown indication
     Dosage: 100 MG, UNK
     Dates: start: 20170320
  12. CHONDROITIN SULFATE A\GLUCOSAMINE [Concomitant]
     Active Substance: CHONDROITIN SULFATE A\GLUCOSAMINE
     Indication: Product used for unknown indication
     Dosage: UNK
     Dates: start: 20170320
  13. Neuromax [Concomitant]
     Indication: Product used for unknown indication
     Dosage: 20 %, UNK
     Dates: start: 20170320
  14. ALIGN [Concomitant]
     Active Substance: BIFIDOBACTERIUM LONGUM SUBSP. INFANTIS
     Indication: Product used for unknown indication
     Dosage: 4 MG, UNK
     Dates: start: 20170320
  15. LITHIUM [Concomitant]
     Active Substance: LITHIUM
     Indication: Product used for unknown indication
     Dosage: 150 MG, UNK
     Dates: start: 20170320
  16. EXELON [Concomitant]
     Active Substance: RIVASTIGMINE TARTRATE
     Indication: Product used for unknown indication
     Dosage: UNK
     Dates: start: 20170320
  17. COMTAN [Concomitant]
     Active Substance: ENTACAPONE
     Indication: Product used for unknown indication
     Dosage: 200 MG, UNK
     Dates: start: 20170320
  18. MYRBETRIQ [Concomitant]
     Active Substance: MIRABEGRON
     Indication: Product used for unknown indication
     Dosage: 25 MG, UNK
     Dates: start: 20170320
  19. NAMENDA [Concomitant]
     Active Substance: MEMANTINE HYDROCHLORIDE
     Indication: Product used for unknown indication
     Dosage: 10 MG, UNK
     Dates: start: 20170320
  20. AZILECT [Concomitant]
     Active Substance: RASAGILINE MESYLATE
     Indication: Product used for unknown indication
     Dosage: 0.5 MG, UNK
     Dates: start: 20170320
  21. AMANTADINE [Concomitant]
     Active Substance: AMANTADINE
     Indication: Product used for unknown indication
     Dosage: 100 MG, UNK
     Dates: start: 20170320
  22. RYTARY [Concomitant]
     Active Substance: CARBIDOPA\LEVODOPA
     Indication: Product used for unknown indication
     Dosage: 245 MG, UNK
     Dates: start: 20170320
  23. BACLOFEN [Concomitant]
     Active Substance: BACLOFEN
     Indication: Product used for unknown indication
     Dosage: 10 MG, UNK
     Dates: start: 20170320
  24. ACTOS [Concomitant]
     Active Substance: PIOGLITAZONE HYDROCHLORIDE
     Indication: Product used for unknown indication
     Dosage: 15 MG, UNK
     Dates: start: 20170320
  25. METFORMIN [Concomitant]
     Active Substance: METFORMIN HYDROCHLORIDE
     Indication: Product used for unknown indication
     Dosage: 500 MG, UNK
     Dates: start: 20170320
  26. CRESTOR [Concomitant]
     Active Substance: ROSUVASTATIN CALCIUM
     Indication: Product used for unknown indication
     Dosage: 10 MG, UNK
     Dates: start: 20170320
  27. DEXILANT [Concomitant]
     Active Substance: DEXLANSOPRAZOLE
     Indication: Product used for unknown indication
     Dosage: 80 MG, UNK
     Dates: start: 20170320
  28. REQUIP [Concomitant]
     Active Substance: ROPINIROLE HYDROCHLORIDE
     Indication: Product used for unknown indication
     Dosage: 0.25 MG, UNK
     Dates: start: 20170320
  29. LACTULOSE [Concomitant]
     Active Substance: LACTULOSE
     Indication: Product used for unknown indication
     Dosage: 10 UNK, UNK
     Dates: start: 20170320
  30. BYETTA [Concomitant]
     Active Substance: EXENATIDE
     Indication: Product used for unknown indication
     Dosage: 10 MCG, UNK
     Dates: start: 20170320, end: 20170819
  31. EFFEXOR [Concomitant]
     Active Substance: VENLAFAXINE HYDROCHLORIDE
     Indication: Product used for unknown indication
     Dosage: 75 MG, UNK
     Dates: start: 20170320
  32. TESTOSTERONE [Concomitant]
     Active Substance: TESTOSTERONE
     Indication: Product used for unknown indication
     Dosage: 200 MG/ML, UNK
     Dates: start: 20170320
  33. FISH OIL [Concomitant]
     Active Substance: FISH OIL
     Indication: Product used for unknown indication
     Dosage: 1000 MG, UNK
     Dates: start: 20170320
  34. THYROID [Concomitant]
     Active Substance: LEVOTHYROXINE\LIOTHYRONINE
     Indication: Product used for unknown indication
     Dosage: UNK
     Dates: start: 20170320
  35. ZANAFLEX [Concomitant]
     Active Substance: TIZANIDINE HYDROCHLORIDE
     Indication: Product used for unknown indication
     Dosage: 4 MG, UNK
     Dates: start: 20170320
  36. ARIMIDEX [Concomitant]
     Active Substance: ANASTROZOLE
     Indication: Product used for unknown indication
     Dosage: 1 MG, UNK
     Dates: start: 20170320
  37. MELATONIN [Concomitant]
     Active Substance: MELATONIN
     Indication: Product used for unknown indication
     Dosage: 3 MG, UNK
     Route: 065
     Dates: start: 20170911
  38. ASPIRIN [Concomitant]
     Active Substance: ASPIRIN
     Indication: Product used for unknown indication
     Dosage: 81 MG, UNK
     Dates: start: 20170320
  39. NOVAREL [Concomitant]
     Active Substance: CHORIOGONADOTROPIN ALFA
     Indication: Product used for unknown indication
     Dosage: 10000 UNITS
     Dates: start: 20170320
  40. CEPHALEXIN [Concomitant]
     Active Substance: CEPHALEXIN
     Indication: Product used for unknown indication
     Dosage: 500 MG, UNK
     Dates: start: 20170122, end: 20170211
  41. VICTOZA [Concomitant]
     Active Substance: LIRAGLUTIDE
     Indication: Product used for unknown indication
     Dosage: 18MG/3ML
     Dates: start: 20170819
  42. LOSARTAN [Concomitant]
     Active Substance: LOSARTAN
     Indication: Product used for unknown indication
     Dosage: 100 MG, UNK
     Dates: start: 20171207

REACTIONS (4)
  - Arrhythmia [Unknown]
  - Hypertension [Unknown]
  - Product dose omission issue [Recovered/Resolved]
  - Fall [Unknown]

NARRATIVE: CASE EVENT DATE: 20171001
